FAERS Safety Report 10387160 (Version 1)
Quarter: 2014Q1

REPORT INFORMATION
  Report Type: Spontaneous
  Country: US (occurrence: None)
  Receive Date: 20140306
  Receipt Date: 20140306
  Transmission Date: 20141002
  Serious: Yes (Other)
  Sender: FDA-Public Use
  Company Number: 163-218880-13093483

PATIENT
  Age: 72 Year
  Sex: Male
  Weight: 111.59 kg

DRUGS (7)
  1. REVLIMID (LENALIDOMIDE) (10 MILLIGRAM, CAPSULES) [Suspect]
     Indication: PLASMA CELL MYELOMA
     Dosage: 10 MG, 21 IN 28 D
     Route: 048
     Dates: start: 20130910, end: 20130916
  2. PLAVIX (CLOPIDOGREL SULFATE) [Concomitant]
  3. SYNTHROID (LEVOTHYROXINE SODIUM) [Concomitant]
  4. NOVOLOG (INSULIN ASPART) [Concomitant]
  5. LANTUS (INSULIN GLARGINE) [Concomitant]
  6. PROMETHAZINE [Concomitant]
  7. ASPIRIN (ACETYLSALICYLIC ACID) [Concomitant]

REACTIONS (1)
  - Swelling face [None]
